FAERS Safety Report 5177249-6 (Version None)
Quarter: 2006Q4

REPORT INFORMATION
  Report Type: 
  Country: None (occurrence: None)
  Receive Date: 20061218
  Receipt Date: 20061205
  Transmission Date: 20070319
  Serious: Yes (Other)
  Sender: FDA-Public Use
  Company Number: 2006GB02218

PATIENT
  Sex: Female

DRUGS (1)
  1. SEROQUEL [Suspect]
     Dosage: 25 - 50 MG
     Route: 048

REACTIONS (4)
  - ANKLE FRACTURE [None]
  - CERVICAL VERTEBRAL FRACTURE [None]
  - FOOT FRACTURE [None]
  - HALLUCINATION, VISUAL [None]
